FAERS Safety Report 16867896 (Version 2)
Quarter: 2019Q3

REPORT INFORMATION
  Report Type: Spontaneous
  Country: US (occurrence: US)
  Receive Date: 20190930
  Receipt Date: 20190930
  Transmission Date: 20191005
  Serious: Yes (Other)
  Sender: FDA-Public Use
  Company Number: US-PFIZER INC-2019405653

PATIENT
  Age: 58 Year
  Sex: Female
  Weight: 80 kg

DRUGS (15)
  1. SODIUM NITROPRUSSIDE. [Suspect]
     Active Substance: SODIUM NITROPRUSSIDE
     Indication: CARDIAC FAILURE CONGESTIVE
     Dosage: UNK,  (110 UG/MIN, INFUSION)
     Route: 042
  2. HYDRALAZINE [Concomitant]
     Active Substance: HYDRALAZINE HYDROCHLORIDE
     Dosage: 100 MG, 4X/DAY, (100 MG Q. 6H)
  3. NITROGLYCERIN. [Concomitant]
     Active Substance: NITROGLYCERIN
     Dosage: UNK
     Route: 042
  4. PHENOXYBENZAMINE [Concomitant]
     Active Substance: PHENOXYBENZAMINE
     Dosage: 10 MG, 2X/DAY
  5. SODIUM NITROPRUSSIDE. [Suspect]
     Active Substance: SODIUM NITROPRUSSIDE
     Dosage: UNK, (SUBMAXIMUM DOSES, INFUSION)
     Route: 042
  6. PRAZOSIN. [Concomitant]
     Active Substance: PRAZOSIN
     Dosage: 1 MG, 2X/DAY, (1 MG B. I.D)
  7. POTASSIUM [Concomitant]
     Active Substance: POTASSIUM
     Indication: SUPPLEMENTATION THERAPY
     Dosage: UNK
  8. PHENTOLAMINE [Concomitant]
     Active Substance: PHENTOLAMINE
     Dosage: UNK
     Route: 041
  9. SODIUM NITROPRUSSIDE. [Suspect]
     Active Substance: SODIUM NITROPRUSSIDE
     Dosage: UNK, (210 UG/MIN, INFUSION)
     Route: 042
  10. TICRYNAFEN. [Concomitant]
     Active Substance: TICRYNAFEN
     Dosage: UNK, 2X/DAY (250)
  11. FUROSEMIDE. [Concomitant]
     Active Substance: FUROSEMIDE
     Dosage: 120 MG, 2X/DAY, (120 MG B.I.D)
  12. DIGOXIN. [Concomitant]
     Active Substance: DIGOXIN
     Dosage: 0.25 MG, 1X/DAY, (0.25 MG Q.D)
  13. SODIUM NITROPRUSSIDE. [Suspect]
     Active Substance: SODIUM NITROPRUSSIDE
     Indication: AORTIC VALVE INCOMPETENCE
     Dosage: UNK, (INFUSION AT 250 UG/MIN)
     Route: 042
  14. AMPICILLIN [Concomitant]
     Active Substance: AMPICILLIN
     Dosage: UNK
  15. METOLAZONE. [Concomitant]
     Active Substance: METOLAZONE
     Dosage: 10 MG, 2X/DAY

REACTIONS (1)
  - Toxicity to various agents [Recovered/Resolved]
